FAERS Safety Report 8581565-5 (Version None)
Quarter: 2012Q2

REPORT INFORMATION
  Report Type: 
  Country: None (occurrence: None)
  Receive Date: 20120423
  Receipt Date: 20100811
  Transmission Date: 20120825
  Serious: Yes (Other)
  Sender: FDA-Public Use
  Company Number: PHHY2010US41687

PATIENT
  Sex: Male
  Weight: 82.2 kg

DRUGS (7)
  1. PREDNISONE (PERDNISONE) [Concomitant]
  2. ACYCLOVIR [Concomitant]
  3. LEVOFLOXACIN [Concomitant]
  4. FLUCONAZOLE [Concomitant]
  5. EXJADE [Suspect]
     Indication: IRON OVERLOAD
     Dosage: 500 MG, ORAL; 1000 MG DAILY, ORAL
     Route: 048
     Dates: start: 20100322, end: 20100518
  6. SEPTRA (SULFAMETHOZAZOLE, TRIMETHOPRIM) [Concomitant]
  7. AZACITIDINE [Concomitant]

REACTIONS (3)
  - BLOOD UREA INCREASED [None]
  - BLOOD CREATININE INCREASED [None]
  - HAEMOGLOBIN DECREASED [None]
